FAERS Safety Report 23142705 (Version 1)
Quarter: 2023Q4

REPORT INFORMATION
  Report Type: Report from Study
  Country: None (occurrence: CN)
  Receive Date: 20231103
  Receipt Date: 20231103
  Transmission Date: 20240109
  Serious: Yes (Hospitalization)
  Sender: FDA-Public Use
  Company Number: CN-Jiangsu Hengrui Medicine Co., Ltd.-2147774

PATIENT
  Age: 78 Year
  Sex: Male
  Weight: 60.7 kg

DRUGS (4)
  1. DOCETAXEL [Suspect]
     Active Substance: DOCETAXEL\DOCETAXEL ANHYDROUS
     Indication: Prostate cancer
     Route: 041
     Dates: start: 20201217, end: 20210219
  2. REZVILUTAMIDE [Suspect]
     Active Substance: REZVILUTAMIDE
     Route: 048
     Dates: start: 20201218, end: 20210128
  3. PREDNISONE ACETATE [Suspect]
     Active Substance: PREDNISONE ACETATE
     Route: 048
     Dates: start: 20201217, end: 20210128
  4. CELECOXIB [Concomitant]
     Active Substance: CELECOXIB

REACTIONS (1)
  - Pneumonia [Not Recovered/Not Resolved]

NARRATIVE: CASE EVENT DATE: 20210111
